FAERS Safety Report 12233314 (Version 4)
Quarter: 2016Q2

REPORT INFORMATION
  Report Type: Report from Study
  Country: US (occurrence: US)
  Receive Date: 20160404
  Receipt Date: 20160527
  Transmission Date: 20160815
  Serious: No
  Sender: FDA-Public Use
  Company Number: PHEH2016US008088

PATIENT
  Sex: Female

DRUGS (1)
  1. GILENYA [Suspect]
     Active Substance: FINGOLIMOD HYDROCHLORIDE
     Indication: MULTIPLE SCLEROSIS
     Dosage: 0.5 MG, QD
     Route: 048
     Dates: start: 20160417

REACTIONS (8)
  - Balance disorder [Recovered/Resolved]
  - Head discomfort [Recovered/Resolved]
  - Stress [Recovered/Resolved]
  - Anxiety [Recovered/Resolved]
  - Central nervous system lesion [Not Recovered/Not Resolved]
  - Memory impairment [Unknown]
  - Dizziness [Not Recovered/Not Resolved]
  - Migraine [Not Recovered/Not Resolved]
